FAERS Safety Report 5605256-5 (Version None)
Quarter: 2008Q1

REPORT INFORMATION
  Report Type: 
  Country: None (occurrence: None)
  Receive Date: 20080129
  Receipt Date: 20080117
  Transmission Date: 20080703
  Serious: Yes (Hospitalization)
  Sender: FDA-Public Use
  Company Number: DK-PFIZER INC-2008006076

PATIENT
  Sex: Female
  Weight: 65 kg

DRUGS (1)
  1. DOSTINEX [Suspect]
     Indication: SUPPRESSED LACTATION
     Route: 048
     Dates: start: 20071201, end: 20071202

REACTIONS (2)
  - ACUTE PSYCHOSIS [None]
  - DEPRESSION [None]
